FAERS Safety Report 9066083 (Version 1)
Quarter: 2013Q1

REPORT INFORMATION
  Report Type: Report from Study
  Country: US (occurrence: US)
  Receive Date: 20130201
  Receipt Date: 20130201
  Transmission Date: 20140127
  Serious: Yes (Hospitalization)
  Sender: FDA-Public Use
  Company Number: US-009507513-1301USA010710

PATIENT
  Age: 59 Year
  Sex: Male
  Weight: 136.7 kg

DRUGS (19)
  1. VORINOSTAT [Suspect]
     Indication: DIFFUSE LARGE B-CELL LYMPHOMA
     Dosage: UNK
     Route: 048
     Dates: start: 201301
  2. BORTEZOMIB [Suspect]
     Indication: DIFFUSE LARGE B-CELL LYMPHOMA
     Dosage: UNK
     Route: 051
     Dates: start: 201301
  3. CARMUSTINE [Suspect]
     Indication: DIFFUSE LARGE B-CELL LYMPHOMA
     Dosage: 300 MG, UNK
     Dates: start: 20130104
  4. VP-16 [Suspect]
     Indication: DIFFUSE LARGE B-CELL LYMPHOMA
     Dosage: 100 MG, UNK
     Dates: start: 20130105, end: 20130108
  5. CYTARABINE [Suspect]
     Indication: DIFFUSE LARGE B-CELL LYMPHOMA
     Dosage: 100 MG TWICE DAILY
     Dates: start: 20130105, end: 20130108
  6. MELPHALAN [Suspect]
     Indication: DIFFUSE LARGE B-CELL LYMPHOMA
     Dosage: 140 MG, UNK
     Dates: start: 20130109
  7. OXYCODONE [Concomitant]
     Indication: PAIN
     Dosage: 5-10 MG EVERY 4 HOURS AS NEEDED
     Route: 048
  8. VITAMINS (UNSPECIFIED) [Concomitant]
     Dosage: UNK
  9. FATTY ACIDS (UNSPECIFIED) (+) OMEGA-3 MARINE TRIGLYCERIDES [Concomitant]
     Dosage: 2 G, QD
     Route: 048
     Dates: start: 20130104
  10. ACYCLOVIR [Concomitant]
     Dosage: 800 MG, Q12H
     Route: 048
     Dates: start: 20130104
  11. CHOLECALCIFEROL [Concomitant]
     Dosage: 2000 UNITS, QD
     Route: 048
     Dates: start: 20130104
  12. FLUCONAZOLE [Concomitant]
     Dosage: 200 MG, QD
     Route: 048
     Dates: start: 20130104
  13. POTASSIUM CHLORIDE (+) SODIUM CHLORIDE [Concomitant]
     Dosage: NACL 1000 ML WITH KCL 20MEQ IV INFUSION DAILY
     Route: 042
     Dates: start: 20130104
  14. DIPHENHYDRAMINE HYDROCHLORIDE [Concomitant]
     Dosage: 25-50 MG EVERY 4 HOURS AS NEEDED
     Route: 048
     Dates: start: 20130104
  15. LORAZEPAM [Concomitant]
     Dosage: 0.5-2 MG EVERY 4 HOURS AS NEEDED
     Route: 048
     Dates: start: 20130104
  16. PROCHLORPERAZINE [Concomitant]
     Dosage: 10 MG, UNK
     Route: 048
     Dates: start: 20130104
  17. ONDANSETRON [Concomitant]
     Dosage: 8 MG, Q8H
     Route: 048
     Dates: start: 20130105
  18. ALUMINUM HYDROXIDE (+) MAGNESIUM HYDROXIDE (+) SIMETHICONE [Concomitant]
     Dosage: 30 ML, EVERY 4 HOURS AS NEEDED
     Route: 048
     Dates: start: 20130113
  19. DOCUSATE SODIUM [Concomitant]
     Dosage: 100 MG, TWICE DAILY AS NEEDED
     Route: 048
     Dates: start: 20130113

REACTIONS (5)
  - Colitis [Unknown]
  - Atrial flutter [Unknown]
  - Abdominal pain lower [Unknown]
  - Diarrhoea [Unknown]
  - Nausea [Unknown]
